FAERS Safety Report 14179559 (Version 1)
Quarter: 2017Q4

REPORT INFORMATION
  Report Type: Spontaneous
  Country: FI (occurrence: FI)
  Receive Date: 20171110
  Receipt Date: 20171110
  Transmission Date: 20180321
  Serious: Yes (Other)
  Sender: FDA-Public Use
  Company Number: FI-TEVA-822172ISR

PATIENT
  Sex: Female

DRUGS (1)
  1. BISOPROACT [Suspect]
     Active Substance: BISOPROLOL
     Route: 065

REACTIONS (9)
  - Arrhythmia [Unknown]
  - Bradycardia [Unknown]
  - Rhinitis allergic [Unknown]
  - Asthma [Unknown]
  - Eye irritation [Unknown]
  - Asthenia [Unknown]
  - Depression [Unknown]
  - Blood cholesterol increased [Unknown]
  - Nightmare [Unknown]

NARRATIVE: CASE EVENT DATE: 20171020
